FAERS Safety Report 23471493 (Version 3)
Quarter: 2025Q3

REPORT INFORMATION
  Report Type: Spontaneous
  Country: US (occurrence: US)
  Receive Date: 20240202
  Receipt Date: 20250915
  Transmission Date: 20251020
  Serious: Yes (Other)
  Sender: SANOFI AVENTIS
  Company Number: US-SA-SAC20240127000161

PATIENT
  Age: 22 Year
  Sex: Male
  Weight: 54.875 kg

DRUGS (26)
  1. LUMIZYME [Suspect]
     Active Substance: ALGLUCOSIDASE ALFA
     Indication: Glycogen storage disease type II
     Dosage: 2100 MG, QW
     Route: 042
     Dates: start: 20221115
  2. EPIPEN [Suspect]
     Active Substance: EPINEPHRINE
  3. SODIUM CHLORIDE [Concomitant]
     Active Substance: SODIUM CHLORIDE
  4. STERILE WATER [Concomitant]
     Active Substance: WATER
  5. COLACE [Concomitant]
     Active Substance: DOCUSATE SODIUM
  6. FAMOTIDINE [Concomitant]
     Active Substance: FAMOTIDINE
  7. ZINC [Concomitant]
     Active Substance: ZINC
  8. PULMICORT TURBUHALER [Concomitant]
     Active Substance: BUDESONIDE
  9. TYLENOL EXTRA STRENGTH [Concomitant]
     Active Substance: ACETAMINOPHEN
  10. HEPARIN [Concomitant]
     Active Substance: HEPARIN SODIUM
  11. FLONASE ALLERGY RELIEF [Concomitant]
     Active Substance: FLUTICASONE PROPIONATE
  12. PREVACID [Concomitant]
     Active Substance: LANSOPRAZOLE
  13. FIBER THERAPY (CALCIUM POLYCARBOPHIL) [Concomitant]
     Active Substance: CALCIUM POLYCARBOPHIL
  14. LIDOCAINE [Concomitant]
     Active Substance: LIDOCAINE
  15. PRILOCAINE [Concomitant]
     Active Substance: PRILOCAINE
  16. VITAMIN D3 [Concomitant]
     Active Substance: CHOLECALCIFEROL
  17. IBU [Concomitant]
     Active Substance: IBUPROFEN
  18. DIPHENHYDRAMINE HYDROCHLORIDE [Concomitant]
     Active Substance: DIPHENHYDRAMINE HYDROCHLORIDE
  19. XOPENEX [Concomitant]
     Active Substance: LEVALBUTEROL HYDROCHLORIDE
  20. LORATADINE [Concomitant]
     Active Substance: LORATADINE
  21. SODIUM CHLORIDE [Concomitant]
     Active Substance: SODIUM CHLORIDE
  22. CHOLESTYRAMINE [Concomitant]
     Active Substance: CHOLESTYRAMINE
  23. PROCELL [Concomitant]
  24. LIDOCAINE HYDROCHLORIDE [Concomitant]
     Active Substance: LIDOCAINE HYDROCHLORIDE
  25. FLUOXETINE HYDROCHLORIDE [Concomitant]
     Active Substance: FLUOXETINE HYDROCHLORIDE
  26. URSODIOL [Concomitant]
     Active Substance: URSODIOL

REACTIONS (2)
  - Mechanical ventilation [Unknown]
  - Inappropriate schedule of product administration [Unknown]

NARRATIVE: CASE EVENT DATE: 20221115
